FAERS Safety Report 4554530-2 (Version None)
Quarter: 2005Q1

REPORT INFORMATION
  Report Type: 
  Country: None (occurrence: None)
  Receive Date: 20041227
  Receipt Date: 20040923
  Transmission Date: 20050727
  Serious: No
  Sender: FDA-Public Use
  Company Number: SP00318

PATIENT
  Age: 77 Year
  Sex: Female
  Weight: 61.2356 kg

DRUGS (7)
  1. XIFAXAN [Suspect]
     Indication: OVERGROWTH BACTERIAL
     Dosage: 400MG TID, ORAL
     Route: 048
     Dates: start: 20040728, end: 20040729
  2. XIFAXAN [Suspect]
     Indication: OVERGROWTH BACTERIAL
     Dosage: 400MG TID, ORAL
     Route: 048
     Dates: start: 20040727, end: 20040730
  3. EVISTA [Concomitant]
  4. ROCALTROL [Concomitant]
  5. ZOCOR [Concomitant]
  6. SYNTHROID [Concomitant]
  7. NEXIUM [Concomitant]

REACTIONS (3)
  - ABDOMINAL DISTENSION [None]
  - AGITATION [None]
  - NAUSEA [None]
